FAERS Safety Report 8602476 (Version 3)
Quarter: 2017Q2

REPORT INFORMATION
  Report Type: Spontaneous
  Country: CL (occurrence: CL)
  Receive Date: 20120607
  Receipt Date: 20170630
  Transmission Date: 20170830
  Serious: Yes (Death, Hospitalization)
  Sender: FDA-Public Use
  Company Number: CL-PFIZER INC-2012133837

PATIENT
  Age: 10 Month
  Sex: Male
  Weight: 13 kg

DRUGS (15)
  1. RISPERIDONE. [Interacting]
     Active Substance: RISPERIDONE
     Indication: MOOD ALTERED
     Dosage: UNK
     Route: 048
     Dates: start: 201204, end: 20120525
  2. COLOMYCIN FOR INJECTION [Concomitant]
     Indication: INFECTION
     Dosage: UNK
     Route: 042
     Dates: start: 20120525, end: 20120531
  3. CIPROFLOXACIN. [Interacting]
     Active Substance: CIPROFLOXACIN
     Indication: URINARY TRACT INFECTION
     Dosage: 120 MG, 2X/DAY
     Route: 042
     Dates: start: 20120514, end: 20120529
  4. DEXMEDETOMIDINE. [Concomitant]
     Active Substance: DEXMEDETOMIDINE
     Indication: SEDATION
     Dosage: 0.2 MG, 0.2MG/50 ML, 1.1 - 1.4 ML/HR
     Route: 041
     Dates: start: 20120529, end: 20120531
  5. VFEND [Suspect]
     Active Substance: VORICONAZOLE
     Indication: ASPERGILLUS INFECTION
     Dosage: 100 MG, 2X/DAY
     Route: 042
     Dates: start: 20120522
  6. MORPHINE [Concomitant]
     Active Substance: MORPHINE
     Indication: ANALGESIC THERAPY
     Dosage: UNK
     Route: 042
     Dates: start: 20120528, end: 20120531
  7. FENTANYL. [Concomitant]
     Active Substance: FENTANYL
     Indication: ANALGESIC THERAPY
  8. VANCOMYCIN [Concomitant]
     Active Substance: VANCOMYCIN
     Indication: INFECTION
     Dosage: UNK
     Route: 042
     Dates: start: 20120515, end: 20120531
  9. COTRIMOXAZOLE [Concomitant]
     Active Substance: SULFAMETHOXAZOLE\TRIMETHOPRIM
     Indication: PNEUMOCYSTIS JIROVECII INFECTION
     Dosage: 35 MG, 3X/DAY
     Route: 042
     Dates: start: 20120518, end: 20120531
  10. MIDAZOLAM [Concomitant]
     Active Substance: MIDAZOLAM HYDROCHLORIDE
     Indication: SEDATION
     Dosage: 4 UG/KG, PER MINUTE
     Route: 041
     Dates: start: 20120521
  11. AMPHOTERICIN B. [Concomitant]
     Active Substance: AMPHOTERICIN B
  12. FENTANYL. [Concomitant]
     Active Substance: FENTANYL
     Indication: SEDATION
     Dosage: UNK
     Route: 042
     Dates: start: 20120523, end: 20120527
  13. MORPHINE [Concomitant]
     Active Substance: MORPHINE
     Indication: SEDATION
     Dosage: UNK
     Route: 042
     Dates: start: 20120521, end: 20120522
  14. MIDAZOLAM [Concomitant]
     Active Substance: MIDAZOLAM HYDROCHLORIDE
     Indication: ANALGESIC THERAPY
  15. MEROPENEM. [Concomitant]
     Active Substance: MEROPENEM
     Indication: INFECTION

REACTIONS (6)
  - Electrocardiogram abnormal [Fatal]
  - Electrocardiogram QT prolonged [Fatal]
  - Arrhythmia [Fatal]
  - Drug interaction [Fatal]
  - Extrasystoles [Fatal]
  - Ventricular tachycardia [Fatal]

NARRATIVE: CASE EVENT DATE: 20120524
